FAERS Safety Report 4440549-9 (Version None)
Quarter: 2004Q3

REPORT INFORMATION
  Report Type: 
  Country: None (occurrence: None)
  Receive Date: 20040831
  Receipt Date: 20040818
  Transmission Date: 20050211
  Serious: Yes (Other)
  Sender: FDA-Public Use
  Company Number: 200310802BCA

PATIENT
  Sex: Female

DRUGS (8)
  1. GAMIMUNE N 10% [Suspect]
     Dosage: SEE IMAGE, , INTRAVENOUS
     Route: 042
     Dates: start: 20030515
  2. GAMIMUNE N 10% [Suspect]
     Dosage: SEE IMAGE, , INTRAVENOUS
     Route: 042
     Dates: start: 20030516
  3. GAMIMUNE N 10% [Suspect]
     Dosage: SEE IMAGE, , INTRAVENOUS
     Route: 042
     Dates: start: 20030604
  4. GAMIMUNE N 10% [Suspect]
     Dosage: 10 G, TOTAL DAILY, INTRAVENOUS
     Route: 042
     Dates: start: 20030515
  5. GAMIMUNE N 10% [Suspect]
     Dosage: 5 G, TOTAL DAILY , INTRAVENOUS
     Route: 042
     Dates: start: 20030515
  6. GAMIMUNE N 10% [Suspect]
     Dosage: 5 G, TOTAL DAILY , INTRAVENOUS
     Route: 042
     Dates: start: 20030516
  7. GAMIMUNE N 10% [Suspect]
     Dosage: 20 G , TOTAL DAILY, INTRAVENOUS : 60 G, TOTAL DAILY , INTRAVENOUS
     Route: 042
     Dates: start: 20030604
  8. GAMIMUNE N 10% [Suspect]
     Dosage: 20 G , TOTAL DAILY, INTRAVENOUS : 60 G, TOTAL DAILY , INTRAVENOUS
     Route: 042
     Dates: start: 20030606

REACTIONS (2)
  - HIV TEST POSITIVE [None]
  - PREGNANCY [None]
